FAERS Safety Report 11173807 (Version 1)
Quarter: 2015Q2

REPORT INFORMATION
  Report Type: Spontaneous
  Country: US (occurrence: None)
  Receive Date: 20150605
  Receipt Date: 20150605
  Transmission Date: 20150821
  Serious: Yes (Other)
  Sender: FDA-Public Use
  Company Number: 54973 AE#1608

PATIENT
  Age: 1 Year
  Sex: Female

DRUGS (1)
  1. BABY TEETHING [Suspect]
     Active Substance: ARABICA COFFEE BEAN\ATROPA BELLADONNA\CALCIUM PHOSPHATE\CHAMOMILE
     Indication: TEETHING
     Dosage: 2 TABS SL BID PRN X2DAYS
     Route: 060

REACTIONS (4)
  - Head injury [None]
  - Aspiration [None]
  - Febrile convulsion [None]
  - Vomiting [None]

NARRATIVE: CASE EVENT DATE: 201404
